FAERS Safety Report 18236956 (Version 2)
Quarter: 2020Q3

REPORT INFORMATION
  Report Type: Report from Study
  Country: None (occurrence: AU)
  Receive Date: 20200907
  Receipt Date: 20200909
  Transmission Date: 20201103
  Serious: Yes (Hospitalization)
  Sender: FDA-Public Use
  Company Number: AU-ABBVIE-20K-008-3554469-00

PATIENT
  Age: 69 Year
  Sex: Female

DRUGS (2)
  1. DUODOPA [Suspect]
     Active Substance: CARBIDOPA\LEVODOPA
     Indication: PARKINSON^S DISEASE
     Dosage: CD 3.8 ML/HR
     Route: 050
     Dates: start: 20190612
  2. DUODOPA [Suspect]
     Active Substance: CARBIDOPA\LEVODOPA
     Dosage: CD 4.2 ML/HR 16 HOURS
     Route: 050

REACTIONS (4)
  - Eye contusion [Unknown]
  - Fall [Unknown]
  - Facial bones fracture [Unknown]
  - Dyskinesia [Unknown]

NARRATIVE: CASE EVENT DATE: 20200828
